FAERS Safety Report 9768209 (Version 1)
Quarter: 2013Q4

REPORT INFORMATION
  Report Type: Spontaneous
  Country: US (occurrence: US)
  Receive Date: 20131217
  Receipt Date: 20131217
  Transmission Date: 20140711
  Serious: Yes (Other)
  Sender: FDA-Public Use
  Company Number: US-BRISTOL-MYERS SQUIBB COMPANY-19913201

PATIENT
  Age: 45 Year
  Sex: Male

DRUGS (1)
  1. NULOJIX [Suspect]
     Indication: RENAL TRANSPLANT
     Dosage: LAST INF NOV13
     Route: 042
     Dates: start: 2001

REACTIONS (3)
  - Skin reaction [Unknown]
  - Rash [Unknown]
  - Pruritus [Unknown]
